FAERS Safety Report 6278737-1 (Version None)
Quarter: 2009Q3

REPORT INFORMATION
  Report Type: 
  Country: None (occurrence: None)
  Receive Date: 20090721
  Receipt Date: 20090710
  Transmission Date: 20100115
  Serious: Yes (Death)
  Sender: FDA-Public Use
  Company Number: 2008AL009835

PATIENT
  Age: 68 Year
  Sex: Male

DRUGS (23)
  1. DIGOXIN [Suspect]
     Indication: ATRIAL FIBRILLATION
     Dosage: 0.125MG, DAILY, PO
     Route: 048
     Dates: start: 20070101
  2. WARFARIN SODIUM [Concomitant]
  3. FUROSEMIDE [Concomitant]
  4. SPIRONOLACTONE [Concomitant]
  5. CARVEDILOL [Concomitant]
  6. PROMETHAZINE [Concomitant]
  7. AVELOX [Concomitant]
  8. VIGAMOX [Concomitant]
  9. CEPHALEXIN [Concomitant]
  10. TUSSIONEX [Concomitant]
  11. METRONIDAZOLE [Concomitant]
  12. POTASSIUM CHLORIDE [Concomitant]
  13. HYDROCODONE [Concomitant]
  14. ZITHROMAX [Concomitant]
  15. ACCUPRIL [Concomitant]
  16. NIFEDIPINE [Concomitant]
  17. AMOXICILLIN [Concomitant]
  18. ADALAT [Concomitant]
  19. PROCARDIA [Concomitant]
  20. QUINAPRIL [Concomitant]
  21. COREG [Concomitant]
  22. PHENERGAN [Concomitant]
  23. PIPERACILLIN [Concomitant]

REACTIONS (26)
  - ABDOMINAL DISCOMFORT [None]
  - ABDOMINAL PAIN UPPER [None]
  - ACTIVITIES OF DAILY LIVING IMPAIRED [None]
  - ASCITES [None]
  - ASTHENIA [None]
  - BLOOD PRESSURE DECREASED [None]
  - CARDIAC ARREST [None]
  - CONFUSIONAL STATE [None]
  - DECREASED APPETITE [None]
  - DEFORMITY [None]
  - DEHYDRATION [None]
  - DIALYSIS [None]
  - DIARRHOEA [None]
  - ECONOMIC PROBLEM [None]
  - EMOTIONAL DISTRESS [None]
  - FATIGUE [None]
  - FEAR [None]
  - INJURY [None]
  - NAUSEA [None]
  - PAIN [None]
  - PANCREATIC CYST [None]
  - PANCREATITIS ACUTE [None]
  - RENAL FAILURE [None]
  - VENTRICULAR TACHYCARDIA [None]
  - VOMITING [None]
  - WEIGHT DECREASED [None]
